FAERS Safety Report 13141923 (Version 1)
Quarter: 2017Q1

REPORT INFORMATION
  Report Type: Spontaneous
  Country: US (occurrence: US)
  Receive Date: 20170123
  Receipt Date: 20170123
  Transmission Date: 20170428
  Serious: Yes (Disabling)
  Sender: FDA-Public Use
  Company Number: None

PATIENT
  Age: 58 Year
  Sex: Female
  Weight: 64.35 kg

DRUGS (10)
  1. METHYLPHENIDATE. [Concomitant]
     Active Substance: METHYLPHENIDATE
  2. GRAPE SEED EXTRACT [Concomitant]
     Active Substance: GRAPE SEED EXTRACT
  3. DIETETICS AND POTASSIUM [Concomitant]
  4. CQ10 [Concomitant]
     Active Substance: UBIDECARENONE
  5. MILK THISTLE [Concomitant]
     Active Substance: MILK THISTLE
  6. CIPROFLOXIN 500MG [Suspect]
     Active Substance: CIPROFLOXACIN
     Indication: URINARY TRACT INFECTION
     Dates: start: 20160823, end: 20160825
  7. MULTIVITAMIN [Concomitant]
     Active Substance: VITAMINS
  8. BACLOFEN. [Concomitant]
     Active Substance: BACLOFEN
  9. FENTYNAL [Concomitant]
     Active Substance: FENTANYL
  10. BCOMPLEX [Concomitant]

REACTIONS (1)
  - Unevaluable event [None]

NARRATIVE: CASE EVENT DATE: 20160826
